FAERS Safety Report 24054554 (Version 2)
Quarter: 2025Q4

REPORT INFORMATION
  Report Type: Spontaneous
  Country: US (occurrence: US)
  Receive Date: 20240705
  Receipt Date: 20251125
  Transmission Date: 20260118
  Serious: Yes (Other)
  Sender: PFIZER
  Company Number: US-PFIZER INC-PV202400086659

PATIENT
  Age: 39 Year
  Sex: Female

DRUGS (3)
  1. ENCORAFENIB [Suspect]
     Active Substance: ENCORAFENIB
     Indication: Colorectal cancer metastatic
     Dosage: 300 MG DAILY
  2. BINIMETINIB [Suspect]
     Active Substance: BINIMETINIB
     Indication: Colorectal cancer metastatic
     Dosage: 45 MG TWICE DAILY
  3. CETUXIMAB [Suspect]
     Active Substance: CETUXIMAB
     Indication: Colorectal cancer metastatic
     Dosage: 370 MG WEEKLY

REACTIONS (1)
  - Melanocytic naevus [Unknown]
